FAERS Safety Report 23595595 (Version 1)
Quarter: 2024Q1

REPORT INFORMATION
  Report Type: Spontaneous
  Country: US (occurrence: None)
  Receive Date: 20240304
  Receipt Date: 20240304
  Transmission Date: 20240409
  Serious: Yes (Death)
  Sender: FDA-Public Use
  Company Number: None

PATIENT
  Sex: Male

DRUGS (10)
  1. GAMMAGARD LIQUID [Suspect]
     Active Substance: HUMAN IMMUNOGLOBULIN G
     Indication: Myasthenia gravis
     Dosage: FREQ: INFUSE 63 GRAMS (630 ML) INTRAVENOUSLY OVER 4 TO 8 HOURS EVERY 4 WEEKS?
     Route: 042
     Dates: start: 20230613
  2. ACETAMINOPHEN [Concomitant]
     Active Substance: ACETAMINOPHEN
  3. CABOMETYX [Concomitant]
     Active Substance: CABOZANTINIB S-MALATE
  4. CARVEDILOL [Concomitant]
     Active Substance: CARVEDILOL
  5. GAMMADARD [Concomitant]
  6. IRBESARTAN [Concomitant]
  7. MELATONIN [Concomitant]
  8. MONOJECT [Concomitant]
  9. SODIUM CHLORIDE [Concomitant]
     Active Substance: SODIUM CHLORIDE
  10. PAIN + FEVER [Concomitant]

REACTIONS (2)
  - Spinal operation [None]
  - Post procedural complication [None]
